FAERS Safety Report 9646345 (Version 2)
Quarter: 2013Q4

REPORT INFORMATION
  Report Type: Spontaneous
  Country: JP (occurrence: JP)
  Receive Date: 20131025
  Receipt Date: 20131115
  Transmission Date: 20140711
  Serious: Yes (Hospitalization, Other)
  Sender: FDA-Public Use
  Company Number: JP-TAKEDA-TCI2013A06363

PATIENT
  Sex: Female

DRUGS (1)
  1. NESINA TABLETS 12.5MG [Suspect]
     Indication: PRODUCT USED FOR UNKNOWN INDICATION
     Dosage: 25 MG, 1 DAYS
     Route: 048

REACTIONS (2)
  - Renal failure acute [Recovering/Resolving]
  - Oedema [Unknown]
